FAERS Safety Report 5268867-5 (Version None)
Quarter: 2007Q1

REPORT INFORMATION
  Report Type: 
  Country: None (occurrence: None)
  Receive Date: 20061212
  Receipt Date: 20050720
  Transmission Date: 20070707
  Serious: Yes (Death, Hospitalization)
  Sender: FDA-Public Use
  Company Number: 2005UW09868

PATIENT
  Age: 68 Year
  Sex: Male
  Weight: 93.8039 kg

DRUGS (10)
  1. CASODEX [Suspect]
     Indication: PROSTATE CANCER
     Dosage: 50 MG DAILY PO
     Route: 048
     Dates: start: 20040131, end: 20040510
  2. INDERAL [Concomitant]
  3. TRIAMTERENE AND HYDROCHLOROTHIAZIDE [Concomitant]
  4. ASPIRIN [Concomitant]
  5. LUPRON [Concomitant]
  6. CENTRUM SILVER [Concomitant]
  7. OSCAL [Concomitant]
  8. ZANTAC [Concomitant]
  9. PERCOCET [Concomitant]
  10. PROMETHAZINE [Concomitant]

REACTIONS (1)
  - DISEASE PROGRESSION [None]
